FAERS Safety Report 8775986 (Version 2)
Quarter: 2012Q4

REPORT INFORMATION
  Report Type: 
  Country: JP (occurrence: JP)
  Receive Date: 20120910
  Receipt Date: 20120919
  Transmission Date: 20130627
  Serious: No
  Sender: FDA-Public Use
  Company Number: JP-UCBSA-065019

PATIENT
  Age: 92 Year
  Sex: Female

DRUGS (4)
  1. E KEPPRA [Suspect]
     Indication: CONVULSION
     Route: 048
  2. E KEPPRA [Suspect]
     Indication: CONVULSION
     Dosage: DAILY DOSE : 1500 MG; ON 3RD DAY
     Route: 048
  3. E KEPPRA [Suspect]
     Indication: CONVULSION
     Dosage: DAILY DOSE : 2000 MG; ON 7TH DAY
     Route: 048
  4. SODIUM VALPROATE [Suspect]
     Indication: CONVULSION

REACTIONS (1)
  - Platelet count decreased [Recovering/Resolving]
